FAERS Safety Report 8998229 (Version 1)
Quarter: 2013Q1

REPORT INFORMATION
  Report Type: Report from Study
  Country: US (occurrence: US)
  Receive Date: 20130104
  Receipt Date: 20130104
  Transmission Date: 20140127
  Serious: No
  Sender: FDA-Public Use
  Company Number: US-VERTEX PHARMACEUTICALS INC.-2013-000094

PATIENT
  Age: 49 Year
  Sex: Male
  Weight: 68 kg

DRUGS (3)
  1. VX-950 (TELAPREVIR) [Suspect]
     Indication: HEPATITIS C
     Dosage: 750 MG, TID
     Route: 048
     Dates: start: 20121105
  2. PEGINTERFERON ALFA [Suspect]
     Indication: HEPATITIS C
     Dosage: QW
     Dates: start: 20121105
  3. RIBAVIRIN [Suspect]
     Indication: HEPATITIS C
     Dosage: 3 DF IN AM, 3 DF  IN PM
     Route: 048
     Dates: start: 20121105

REACTIONS (6)
  - Headache [Not Recovered/Not Resolved]
  - Arthralgia [Not Recovered/Not Resolved]
  - Pain [Not Recovered/Not Resolved]
  - Formication [Not Recovered/Not Resolved]
  - Myalgia [Not Recovered/Not Resolved]
  - Dysgeusia [Not Recovered/Not Resolved]
